FAERS Safety Report 8043309-5 (Version None)
Quarter: 2012Q1

REPORT INFORMATION
  Report Type: 
  Country: None (occurrence: None)
  Receive Date: 20120112
  Receipt Date: 20120110
  Transmission Date: 20120608
  Serious: Yes (Death, Hospitalization)
  Sender: FDA-Public Use
  Company Number: US-VIIV HEALTHCARE LIMITED-A0960785A

PATIENT
  Age: 62 Year
  Sex: Male

DRUGS (9)
  1. COMBIVENT [Concomitant]
  2. BACTRIM [Concomitant]
  3. PRILOSEC [Concomitant]
  4. MAGNESIUM [Concomitant]
  5. ZITHROMAX [Concomitant]
  6. KALETRA [Concomitant]
  7. ZIAGEN [Suspect]
     Indication: HIV INFECTION
     Dosage: 300MG TWICE PER DAY
     Route: 048
     Dates: start: 20110303, end: 20111001
  8. IMODIUM [Concomitant]
  9. ALLOPURINOL [Concomitant]

REACTIONS (1)
  - DEATH [None]
